FAERS Safety Report 18036666 (Version 3)
Quarter: 2020Q3

REPORT INFORMATION
  Report Type: Report from Study
  Country: BR (occurrence: BR)
  Receive Date: 20200717
  Receipt Date: 20200928
  Transmission Date: 20201103
  Serious: Yes (Other)
  Sender: FDA-Public Use
  Company Number: BR-UCBSA-2020027773

PATIENT
  Age: 40 Year
  Sex: Female
  Weight: 77 kg

DRUGS (6)
  1. AZITROMICINA [Concomitant]
     Active Substance: AZITHROMYCIN DIHYDRATE
     Indication: COVID-19
     Dosage: 500 MILLIGRAM, ONCE DAILY (QD)
     Route: 048
     Dates: start: 20200619, end: 20200623
  2. AZITROMICINA [Concomitant]
     Active Substance: AZITHROMYCIN DIHYDRATE
     Indication: PNEUMONIA
     Dosage: UNK
     Dates: start: 20200914, end: 20200914
  3. IVERMECTINA [Concomitant]
     Indication: COVID-19
     Dosage: 120 MILLIGRAM
     Route: 048
     Dates: start: 20200619, end: 20200623
  4. LAVITAN A Z MAIS [Concomitant]
     Indication: RHEUMATOID ARTHRITIS
  5. CERTOLIZUMAB PEGOL RA [Suspect]
     Active Substance: CERTOLIZUMAB PEGOL
     Indication: RHEUMATOID ARTHRITIS
     Dosage: 400 MILLIGRAM, MONTHLY (QM)
     Route: 058
     Dates: start: 2020, end: 20200522
  6. CERTOLIZUMAB PEGOL RA [Suspect]
     Active Substance: CERTOLIZUMAB PEGOL
     Dosage: 400 MILLIGRAM, MONTHLY (QM)
     Route: 058
     Dates: start: 2020, end: 20200822

REACTIONS (13)
  - Alopecia [Recovered/Resolved]
  - COVID-19 [Recovered/Resolved]
  - Pyrexia [Recovered/Resolved]
  - Headache [Recovered/Resolved]
  - Rheumatoid arthritis [Recovered/Resolved]
  - Pneumonia [Not Recovered/Not Resolved]
  - Hepatitis [Not Recovered/Not Resolved]
  - Chest pain [Recovered/Resolved]
  - Skin exfoliation [Recovered/Resolved]
  - Skin discolouration [Not Recovered/Not Resolved]
  - Musculoskeletal chest pain [Recovered/Resolved]
  - Eye swelling [Recovered/Resolved]
  - Swelling face [Recovered/Resolved]

NARRATIVE: CASE EVENT DATE: 20200518
